FAERS Safety Report 22096542 (Version 1)
Quarter: 2023Q1

REPORT INFORMATION
  Report Type: Report from Study
  Country: CA (occurrence: CA)
  Receive Date: 20230315
  Receipt Date: 20230315
  Transmission Date: 20230418
  Serious: Yes (Other)
  Sender: FDA-Public Use
  Company Number: CA-ABBVIE-4337562

PATIENT
  Age: 30 Year
  Sex: Female

DRUGS (3)
  1. HUMIRA [Suspect]
     Active Substance: ADALIMUMAB
     Indication: Crohn^s disease
     Dosage: FORM STRENGTH: 40 MILLIGRAM
     Route: 058
     Dates: start: 20150923
  2. HUMIRA [Suspect]
     Active Substance: ADALIMUMAB
     Dosage: FORM STRENGTH: 40 MILLIGRAM?STOP DATE FEB 2023
     Route: 058
     Dates: start: 20230220
  3. HUMIRA [Suspect]
     Active Substance: ADALIMUMAB
     Dosage: FORM STRENGTH: 40 MILLIGRAM
     Route: 058
     Dates: start: 20230228

REACTIONS (9)
  - Ectopic pregnancy [Unknown]
  - Heart rate increased [Unknown]
  - Abdominal pain upper [Unknown]
  - Unevaluable event [Unknown]
  - Infrequent bowel movements [Unknown]
  - Poor peripheral circulation [Unknown]
  - Renal pain [Unknown]
  - Maternal exposure during pregnancy [Unknown]
  - Salpingectomy [Unknown]

NARRATIVE: CASE EVENT DATE: 20230301
